FAERS Safety Report 22697230 (Version 2)
Quarter: 2023Q4

REPORT INFORMATION
  Report Type: Spontaneous
  Country: CN (occurrence: CN)
  Receive Date: 20230712
  Receipt Date: 20231006
  Transmission Date: 20240109
  Serious: Yes (Life-Threatening)
  Sender: FDA-Public Use
  Company Number: CN-BAYER-2023A095345

PATIENT
  Age: 57 Year
  Sex: Female
  Weight: 57.2 kg

DRUGS (2)
  1. ULTRAVIST [Suspect]
     Active Substance: IOPROMIDE
     Indication: Computerised tomogram
     Dosage: 100 ML, ONCE
     Route: 042
     Dates: start: 20230619, end: 20230619
  2. ULTRAVIST [Suspect]
     Active Substance: IOPROMIDE
     Indication: Pancreatitis acute

REACTIONS (9)
  - Anaphylactic shock [Recovered/Resolved]
  - Contrast media allergy [None]
  - Rash erythematous [Recovered/Resolved]
  - Oropharyngeal discomfort [Recovered/Resolved]
  - Dyspnoea [Recovered/Resolved]
  - Dizziness [None]
  - Blood pressure decreased [Recovered/Resolved]
  - Lip oedema [None]
  - Cyanosis [Recovered/Resolved]

NARRATIVE: CASE EVENT DATE: 20230619
